FAERS Safety Report 20205590 (Version 3)
Quarter: 2022Q1

REPORT INFORMATION
  Report Type: Report from Study
  Country: DO (occurrence: DO)
  Receive Date: 20211220
  Receipt Date: 20220303
  Transmission Date: 20220424
  Serious: Yes (Life-Threatening, Other)
  Sender: FDA-Public Use
  Company Number: DO-NOVARTISPH-NVSC2021DO290475

PATIENT
  Sex: Female

DRUGS (1)
  1. ELTROMBOPAG OLAMINE [Suspect]
     Active Substance: ELTROMBOPAG OLAMINE
     Indication: Immune thrombocytopenia
     Dosage: 25 MG, QD
     Route: 048
     Dates: start: 20211211

REACTIONS (6)
  - Platelet count decreased [Unknown]
  - Gingival bleeding [Unknown]
  - Epistaxis [Unknown]
  - Thrombosis [Unknown]
  - Cerebrovascular accident [Unknown]
  - Eating disorder [Unknown]
